FAERS Safety Report 6349644-0 (Version None)
Quarter: 2009Q3

REPORT INFORMATION
  Report Type: 
  Country: None (occurrence: None)
  Receive Date: 20090911
  Receipt Date: 20090901
  Transmission Date: 20100115
  Serious: Yes (Other)
  Sender: FDA-Public Use
  Company Number: BR-ELI_LILLY_AND_COMPANY-BR200905004187

PATIENT
  Age: 82 Year
  Sex: Female
  Weight: 58 kg

DRUGS (7)
  1. FORTEO [Suspect]
     Indication: OSTEOPOROSIS
     Dosage: UNK, UNKNOWN
     Route: 065
     Dates: start: 20080501
  2. AMLODIPINA /00972402/ [Concomitant]
     Indication: BLOOD PRESSURE
     Dosage: 5 MG, UNKNOWN
     Route: 065
  3. LOSARTAN [Concomitant]
     Indication: BLOOD PRESSURE
     Dosage: 50 MG, UNKNOWN
     Route: 065
  4. ANCORON [Concomitant]
     Indication: CARDIAC DISORDER
     Dosage: 10 MG, UNKNOWN
     Route: 065
  5. PANTOPRAZOL [Concomitant]
     Indication: GASTRIC DISORDER
     Dosage: UNK, UNKNOWN
     Route: 065
  6. CITALOPRAM HYDROBROMIDE [Concomitant]
     Indication: DEPRESSION
     Dosage: 20 MG, UNKNOWN
     Route: 065
  7. RIVOTRIL [Concomitant]
     Indication: DEPRESSION
     Dosage: UNK, UNKNOWN
     Route: 065

REACTIONS (7)
  - CONFUSIONAL STATE [None]
  - DEPRESSION [None]
  - FALL [None]
  - FEMUR FRACTURE [None]
  - LABORATORY TEST ABNORMAL [None]
  - MEMORY IMPAIRMENT [None]
  - RIB FRACTURE [None]
